FAERS Safety Report 9124618 (Version 1)
Quarter: 2013Q1

REPORT INFORMATION
  Report Type: Spontaneous
  Country: US (occurrence: US)
  Receive Date: 20130116
  Receipt Date: 20130116
  Transmission Date: 20140127
  Serious: Yes (Life-Threatening)
  Sender: FDA-Public Use
  Company Number: PHEH2013US001245

PATIENT
  Sex: Female

DRUGS (2)
  1. DIOVAN [Suspect]
  2. ANTIDEPRESSANTS [Concomitant]

REACTIONS (5)
  - Neoplasm malignant [Unknown]
  - Gout [Unknown]
  - Fibromyalgia [Unknown]
  - Pain in extremity [Unknown]
  - Musculoskeletal discomfort [Unknown]
